APPROVED DRUG PRODUCT: METHYLPHENIDATE HYDROCHLORIDE
Active Ingredient: METHYLPHENIDATE HYDROCHLORIDE
Strength: 27MG
Dosage Form/Route: TABLET, EXTENDED RELEASE;ORAL
Application: A208607 | Product #002
Applicant: ANI PHARMACEUTICALS INC
Approved: Jul 14, 2017 | RLD: No | RS: No | Type: DISCN